FAERS Safety Report 8020561-3 (Version None)
Quarter: 2012Q1

REPORT INFORMATION
  Report Type: 
  Country: None (occurrence: None)
  Receive Date: 20120103
  Receipt Date: 20111227
  Transmission Date: 20120608
  Serious: Yes (Hospitalization)
  Sender: FDA-Public Use
  Company Number: DE-MERCK-1112DEU00011

PATIENT
  Age: 59 Year
  Sex: Male
  Weight: 108 kg

DRUGS (7)
  1. RAMIPRIL [Concomitant]
     Route: 065
  2. METOPROLOL SUCCINATE [Concomitant]
     Route: 065
  3. JANUVIA [Suspect]
     Indication: TYPE 2 DIABETES MELLITUS
     Route: 048
     Dates: end: 20111201
  4. AMLODIPINE [Concomitant]
     Route: 065
  5. MESALAMINE [Concomitant]
     Route: 065
  6. METFORMIN [Concomitant]
     Indication: TYPE 2 DIABETES MELLITUS
     Route: 048
     Dates: end: 20111201
  7. PANTOPRAZOLE SODIUM [Concomitant]
     Route: 065

REACTIONS (1)
  - ENTEROCOLITIS INFECTIOUS [None]
